FAERS Safety Report 8997638 (Version 2)
Quarter: 2013Q1

REPORT INFORMATION
  Report Type: Spontaneous
  Country: US (occurrence: US)
  Receive Date: 20130104
  Receipt Date: 20130315
  Transmission Date: 20140127
  Serious: Yes (Hospitalization, Disabling, Other)
  Sender: FDA-Public Use
  Company Number: US-009507513-1212USA009953

PATIENT
  Sex: Female
  Weight: 58.5 kg

DRUGS (8)
  1. FOSAMAX [Suspect]
     Indication: OSTEOPOROSIS
     Dosage: 70 MG QW
     Route: 048
     Dates: start: 20050309
  2. FOSAMAX [Suspect]
     Indication: OSTEOPOROSIS
     Dosage: 70 MG, QW
     Route: 048
     Dates: start: 20090206, end: 20120201
  3. FOSAMAX PLUS D [Suspect]
     Indication: OSTEOPOROSIS
     Dosage: 70 MG, QW
     Route: 048
     Dates: start: 20070529, end: 20081022
  4. CALCARB WITH VITAMIN D [Concomitant]
     Dosage: 600 MG, BID
     Route: 048
     Dates: start: 2009
  5. CALCIUM (UNSPECIFIED) [Concomitant]
     Dosage: 1500 MG, QD
     Route: 048
  6. MAGNESIUM (UNSPECIFIED) [Concomitant]
     Dosage: 300 MG, BID
     Route: 048
  7. MINERALS (UNSPECIFIED) (+) VITAMINS (UNSPECIFIED) [Concomitant]
     Dosage: UNK, QD
     Route: 048
  8. ASCORBIC ACID [Concomitant]
     Dosage: 500 MG, UNK
     Route: 048
     Dates: start: 2007

REACTIONS (30)
  - Femur fracture [Not Recovered/Not Resolved]
  - Fall [Unknown]
  - Open reduction of fracture [Unknown]
  - Stress fracture [Not Recovered/Not Resolved]
  - Lower limb fracture [Unknown]
  - Medical device removal [Unknown]
  - Low turnover osteopathy [Not Recovered/Not Resolved]
  - Osteoporosis [Not Recovered/Not Resolved]
  - Femur fracture [Not Recovered/Not Resolved]
  - Intramedullary rod insertion [Unknown]
  - Stress fracture [Not Recovered/Not Resolved]
  - Dizziness [Unknown]
  - Wrist fracture [Unknown]
  - Reflux laryngitis [Unknown]
  - Gingival operation [Unknown]
  - Hyperlipidaemia [Not Recovered/Not Resolved]
  - Steroid therapy [Unknown]
  - Fall [Unknown]
  - Large intestine polyp [Unknown]
  - Wheezing [Unknown]
  - Rhinitis [Unknown]
  - Bursitis [Not Recovered/Not Resolved]
  - Atrophic vulvovaginitis [Unknown]
  - Dermatitis contact [Unknown]
  - Pharyngitis streptococcal [Unknown]
  - Epistaxis [Unknown]
  - Myalgia [Unknown]
  - Arthralgia [Unknown]
  - Muscle spasms [Recovered/Resolved]
  - Hypersensitivity [Unknown]
